FAERS Safety Report 8862406 (Version 2)
Quarter: 2013Q1

REPORT INFORMATION
  Report Type: Spontaneous
  Country: FR (occurrence: FR)
  Receive Date: 20121026
  Receipt Date: 20130311
  Transmission Date: 20140127
  Serious: Yes (Hospitalization)
  Sender: FDA-Public Use
  Company Number: FR-PFIZER INC-2012263087

PATIENT
  Age: 74 Year
  Sex: Male

DRUGS (2)
  1. FLUOROURACILE PFIZER [Suspect]
     Dosage: 2920 MG, SINGLE
     Route: 042
     Dates: start: 20120801, end: 20120801
  2. AVASTIN [Suspect]
     Dosage: 305 MG, SINGLE
     Route: 042
     Dates: start: 20120801, end: 20120801

REACTIONS (2)
  - Ischaemic stroke [Recovered/Resolved with Sequelae]
  - Hemiplegia [Recovered/Resolved with Sequelae]
